FAERS Safety Report 13707273 (Version 1)
Quarter: 2017Q2

REPORT INFORMATION
  Report Type: Report from Study
  Country: None (occurrence: US)
  Receive Date: 20170630
  Receipt Date: 20170630
  Transmission Date: 20170830
  Serious: No
  Sender: FDA-Public Use
  Company Number: US-IPSEN BIOPHARMACEUTICALS, INC.-2014-0087

PATIENT
  Age: 50 Year
  Sex: Male
  Weight: 77 kg

DRUGS (18)
  1. AXIRON [Concomitant]
     Active Substance: TESTOSTERONE
     Indication: BLOOD TESTOSTERONE DECREASED
     Dosage: NOT REPORTED
     Route: 065
  2. METFORMIN [Suspect]
     Active Substance: METFORMIN HYDROCHLORIDE
     Indication: PRODUCT USED FOR UNKNOWN INDICATION
     Dosage: NOT REPORTED
     Route: 065
     Dates: start: 201405
  3. FLOVENT [Concomitant]
     Active Substance: FLUTICASONE PROPIONATE
     Indication: ASTHMA
     Route: 065
  4. GLUCOSAMINE [Concomitant]
     Active Substance: GLUCOSAMINE
     Indication: PERIPHERAL SWELLING
     Dosage: NOT REPORTED
     Route: 065
  5. VITAMIN C [Concomitant]
     Active Substance: ASCORBIC ACID
     Indication: PRODUCT USED FOR UNKNOWN INDICATION
     Dosage: NOT REPORTED
     Route: 065
  6. CPAP [Concomitant]
     Active Substance: DEVICE
     Indication: SLEEP APNOEA SYNDROME
     Dosage: NOT REPORTED
     Route: 065
  7. COZAAR [Concomitant]
     Active Substance: LOSARTAN POTASSIUM
     Indication: PRODUCT USED FOR UNKNOWN INDICATION
     Dosage: NOT REPORTED
     Route: 065
  8. MEN^S 1 VITAMIN [Concomitant]
     Indication: PRODUCT USED FOR UNKNOWN INDICATION
     Dosage: NOT REPORTED
     Route: 065
  9. SOMATULINE DEPOT [Suspect]
     Active Substance: LANREOTIDE ACETATE
     Indication: ACROMEGALY
     Route: 058
     Dates: start: 20121012, end: 201401
  10. SOMATULINE DEPOT [Suspect]
     Active Substance: LANREOTIDE ACETATE
     Route: 058
     Dates: start: 201401, end: 201404
  11. NEXIUM [Concomitant]
     Active Substance: ESOMEPRAZOLE MAGNESIUM
     Indication: GASTROOESOPHAGEAL REFLUX DISEASE
     Dosage: NOT REPORTED
     Route: 065
  12. FIBRE [Concomitant]
     Indication: IRRITABLE BOWEL SYNDROME
     Dosage: NOT REPORTED
     Route: 065
  13. ALBUTEROL. [Concomitant]
     Active Substance: ALBUTEROL
     Indication: ASTHMA
     Dosage: NOT REPORTED
     Route: 065
  14. SOMATULINE DEPOT [Suspect]
     Active Substance: LANREOTIDE ACETATE
     Route: 058
     Dates: start: 201404
  15. FISH OIL [Concomitant]
     Active Substance: FISH OIL
     Indication: PRODUCT USED FOR UNKNOWN INDICATION
     Dosage: NOT REPORTED
     Route: 065
  16. HYDROCORTISONE. [Concomitant]
     Active Substance: HYDROCORTISONE
     Indication: CORTISOL INCREASED
     Dosage: 15 MG MORNING, 5 MG EVENING
     Route: 048
  17. CRANBERRY PILLS [Concomitant]
     Indication: PROSTATE INFECTION
     Dosage: NOT REPORTED
     Route: 065
  18. ^ALOHIM TIW^ [Concomitant]
     Indication: CYSTITIS INTERSTITIAL
     Dosage: NOT REPORTED
     Route: 065

REACTIONS (7)
  - Injection site mass [Unknown]
  - Insulin-like growth factor increased [Recovering/Resolving]
  - Blood pressure increased [Not Recovered/Not Resolved]
  - Injection site scar [Unknown]
  - Blood glucose increased [Unknown]
  - Flatulence [None]
  - Diarrhoea [Unknown]

NARRATIVE: CASE EVENT DATE: 201404
